FAERS Safety Report 8969353 (Version 1)
Quarter: 2012Q4

REPORT INFORMATION
  Report Type: 
  Country: US (occurrence: US)
  Receive Date: 20121218
  Receipt Date: 20121218
  Transmission Date: 20130627
  Serious: No
  Sender: FDA-Public Use
  Company Number: US-BRISTOL-MYERS SQUIBB COMPANY-16284804

PATIENT
  Age: 75 Year
  Sex: Female

DRUGS (3)
  1. ABILIFY [Suspect]
     Indication: MAJOR DEPRESSION
     Dates: start: 201110
  2. TRAZODONE HCL [Concomitant]
  3. MIRTAZAPINE [Concomitant]

REACTIONS (5)
  - Vision blurred [Unknown]
  - Restlessness [Unknown]
  - Dizziness [Unknown]
  - Insomnia [Unknown]
  - Fatigue [Unknown]
